FAERS Safety Report 4726975-9 (Version None)
Quarter: 2005Q3

REPORT INFORMATION
  Report Type: 
  Country: None (occurrence: None)
  Receive Date: 20050728
  Receipt Date: 20050125
  Transmission Date: 20060218
  Serious: Yes (Hospitalization)
  Sender: FDA-Public Use
  Company Number: US-BRISTOL-MYERS SQUIBB COMPANY-12837407

PATIENT
  Age: 58 Year
  Sex: Female

DRUGS (4)
  1. CETUXIMAB [Suspect]
     Indication: OVARIAN CANCER
     Route: 042
     Dates: start: 20041015, end: 20041015
  2. CARBOPLATIN [Suspect]
     Indication: OVARIAN CANCER
     Route: 042
     Dates: start: 20041020, end: 20041020
  3. PACLITAXEL [Suspect]
     Indication: OVARIAN CANCER
     Dosage: 1ST PACLITAXEL INFUSION ADMINISTERED ON 15-OCT-2004.
     Route: 042
     Dates: start: 20041015, end: 20041020
  4. DOCETAXEL [Concomitant]
     Dates: start: 20041022, end: 20041022

REACTIONS (1)
  - CONSTIPATION [None]
